FAERS Safety Report 8484444-7 (Version None)
Quarter: 2012Q3

REPORT INFORMATION
  Report Type: 
  Country: None (occurrence: None)
  Receive Date: 20120703
  Receipt Date: 20120625
  Transmission Date: 20120928
  Serious: Yes (Death)
  Sender: FDA-Public Use
  Company Number: US-ACTELION-A-NJ2011-58473

PATIENT

DRUGS (4)
  1. TYVASO [Concomitant]
  2. TRACLEER [Suspect]
     Dosage: UNK
     Route: 048
     Dates: end: 20120101
  3. TRACLEER [Suspect]
     Indication: PULMONARY ARTERIAL HYPERTENSION
     Dosage: UNK
     Route: 048
     Dates: end: 20110101
  4. REVATIO [Concomitant]

REACTIONS (4)
  - GAIT DISTURBANCE [None]
  - FEELING ABNORMAL [None]
  - DEATH [None]
  - MALAISE [None]
